FAERS Safety Report 18308332 (Version 1)
Quarter: 2020Q3

REPORT INFORMATION
  Report Type: Spontaneous
  Country: SE (occurrence: SE)
  Receive Date: 20200924
  Receipt Date: 20200924
  Transmission Date: 20201103
  Serious: Yes (Congenital Anomaly)
  Sender: FDA-Public Use
  Company Number: SE-BAYER-2020-197110

PATIENT
  Sex: Male

DRUGS (1)
  1. KYLEENA [Suspect]
     Active Substance: LEVONORGESTREL
     Indication: CONTRACEPTION
     Dosage: UNK
     Route: 064
     Dates: start: 20170921

REACTIONS (3)
  - Foetal exposure during pregnancy [Unknown]
  - Penile torsion [Unknown]
  - Hypospadias [Unknown]

NARRATIVE: CASE EVENT DATE: 201910
